FAERS Safety Report 4844712-4 (Version None)
Quarter: 2005Q4

REPORT INFORMATION
  Report Type: 
  Country: None (occurrence: None)
  Receive Date: 20051129
  Receipt Date: 20051026
  Transmission Date: 20060501
  Serious: Yes (Hospitalization)
  Sender: FDA-Public Use
  Company Number: WAES 0510USA09966

PATIENT
  Age: 37 Year
  Sex: Male

DRUGS (1)
  1. COZAAR [Suspect]
     Indication: ESSENTIAL HYPERTENSION
     Dosage: PO
     Route: 048
     Dates: start: 20041013, end: 20051022

REACTIONS (2)
  - LARGE INTESTINAL OBSTRUCTION [None]
  - WHITE BLOOD CELL COUNT INCREASED [None]
